FAERS Safety Report 8240008-1 (Version None)
Quarter: 2012Q1

REPORT INFORMATION
  Report Type: 
  Country: None (occurrence: None)
  Receive Date: 20120328
  Receipt Date: 20120320
  Transmission Date: 20120608
  Serious: Yes (Hospitalization, Other)
  Sender: FDA-Public Use
  Company Number: US-BAYER-2011-105076

PATIENT
  Age: 45 Year
  Sex: Female
  Weight: 102.4 kg

DRUGS (4)
  1. IBUPROFEN [Concomitant]
     Dosage: UNK
     Dates: start: 20020101, end: 20090101
  2. PREDNISONE TAB [Concomitant]
  3. HYDROCHLOROTHIAZIDE [Concomitant]
  4. YASMIN [Suspect]
     Indication: CONTRACEPTION
     Dosage: UNK
     Route: 048
     Dates: start: 20090101, end: 20100101

REACTIONS (7)
  - GALLBLADDER DISORDER [None]
  - EMOTIONAL DISTRESS [None]
  - CHOLELITHIASIS [None]
  - DYSPEPSIA [None]
  - PAIN [None]
  - ANXIETY [None]
  - GENERAL PHYSICAL HEALTH DETERIORATION [None]
